FAERS Safety Report 16457921 (Version 1)
Quarter: 2019Q2

REPORT INFORMATION
  Report Type: Report from Study
  Country: PK (occurrence: PK)
  Receive Date: 20190620
  Receipt Date: 20190620
  Transmission Date: 20190711
  Serious: Yes (Death)
  Sender: FDA-Public Use
  Company Number: PHHY2017PK205177

PATIENT
  Sex: Male
  Weight: 50 kg

DRUGS (2)
  1. GLIVEC [Suspect]
     Active Substance: IMATINIB MESYLATE
     Indication: MYELOPROLIFERATIVE NEOPLASM
  2. GLIVEC [Suspect]
     Active Substance: IMATINIB MESYLATE
     Indication: MYELODYSPLASTIC SYNDROME
     Dosage: 400 MG, QD
     Route: 048
     Dates: start: 20160315, end: 20160613

REACTIONS (1)
  - Death [Fatal]

NARRATIVE: CASE EVENT DATE: 2017
